FAERS Safety Report 4388505-3 (Version None)
Quarter: 2004Q2

REPORT INFORMATION
  Report Type: 
  Country: None (occurrence: None)
  Receive Date: 20040625
  Receipt Date: 20040610
  Transmission Date: 20050107
  Serious: No
  Sender: FDA-Public Use
  Company Number: B0335222A

PATIENT
  Age: 46 Year
  Sex: Female

DRUGS (5)
  1. CEFAZOLIN SODIUM [Suspect]
     Indication: PREOPERATIVE CARE
  2. PANCURONIUM BROMIDE [Concomitant]
  3. PROPOFOL [Concomitant]
  4. MIDOZOLAM [Concomitant]
  5. FENTANYL [Concomitant]

REACTIONS (2)
  - ANAPHYLACTIC REACTION [None]
  - SKIN TEST POSITIVE [None]
